FAERS Safety Report 4608053-2 (Version None)
Quarter: 2005Q2

REPORT INFORMATION
  Report Type: 
  Country: None (occurrence: None)
  Receive Date: 20050303
  Receipt Date: 20041217
  Transmission Date: 20051028
  Serious: No
  Sender: FDA-Public Use
  Company Number: 210648

PATIENT
  Age: 37 Year
  Sex: Female
  Weight: 117.5 kg

DRUGS (5)
  1. XOLAIR [Suspect]
     Indication: ASTHMA
     Dosage: 300 MG, 1/WEEK, SUBCUTANEOUS; 150 MG, Q2W, SUBCUTANEOUS
     Route: 058
  2. FLOVENT [Concomitant]
  3. XOPENEX [Concomitant]
  4. FORADIL [Concomitant]
  5. PREDNISONE [Concomitant]

REACTIONS (1)
  - PARAESTHESIA ORAL [None]
